FAERS Safety Report 9893051 (Version 1)
Quarter: 2014Q1

REPORT INFORMATION
  Report Type: Report from Study
  Country: US (occurrence: US)
  Receive Date: 20140213
  Receipt Date: 20140213
  Transmission Date: 20141002
  Serious: Yes (Death)
  Sender: FDA-Public Use
  Company Number: US-ROCHE-1319868

PATIENT
  Age: 49 Year
  Sex: Male
  Weight: 67 kg

DRUGS (13)
  1. AVASTIN [Suspect]
     Indication: LUNG NEOPLASM MALIGNANT
     Route: 042
     Dates: start: 20111026
  2. CARBOPLATIN [Concomitant]
     Route: 042
     Dates: start: 20111026
  3. ALIMTA [Concomitant]
     Route: 042
     Dates: start: 20111026
  4. DEXAMETHASONE [Concomitant]
     Route: 042
     Dates: start: 20111026
  5. ONDANSETRON HCL [Concomitant]
     Route: 042
     Dates: start: 20111026
  6. ARIXTRA [Concomitant]
  7. ATIVAN [Concomitant]
  8. VICODIN [Concomitant]
  9. COMPAZINE [Concomitant]
     Indication: NAUSEA
     Route: 065
  10. COMPAZINE [Concomitant]
     Indication: VOMITING
  11. CHANTIX [Concomitant]
  12. ZOMETA [Concomitant]
  13. VITAMIN B12 [Concomitant]
     Route: 065

REACTIONS (7)
  - Death [Fatal]
  - Dyspnoea [Unknown]
  - Cough [Unknown]
  - Fatigue [Unknown]
  - Disease progression [Unknown]
  - Dyspnoea [Unknown]
  - Dyspnoea exertional [Unknown]
